FAERS Safety Report 19496520 (Version 1)
Quarter: 2021Q3

REPORT INFORMATION
  Report Type: Spontaneous
  Country: US (occurrence: US)
  Receive Date: 20210701
  Receipt Date: 20210701
  Transmission Date: 20211014
  Serious: No
  Sender: FDA-Public Use
  Company Number: None

PATIENT
  Age: 95 Year
  Sex: Male
  Weight: 81 kg

DRUGS (1)
  1. LOSARTAN (LOSARTAN 50MG TAB) [Suspect]
     Active Substance: LOSARTAN
     Indication: HYPERTENSION
     Route: 048
     Dates: start: 20210122, end: 20210128

REACTIONS (1)
  - Angioedema [None]

NARRATIVE: CASE EVENT DATE: 20210128
